FAERS Safety Report 6261417-6 (Version None)
Quarter: 2009Q3

REPORT INFORMATION
  Report Type: 
  Country: None (occurrence: None)
  Receive Date: 20090709
  Receipt Date: 20090630
  Transmission Date: 20100115
  Serious: Yes (Hospitalization)
  Sender: FDA-Public Use
  Company Number: JP-ASTRAZENECA-2009SE03864

PATIENT
  Age: 76 Year
  Sex: Male

DRUGS (4)
  1. OMEPRAL [Suspect]
     Route: 048
     Dates: start: 20090410, end: 20090611
  2. PLAVIX [Suspect]
     Route: 048
     Dates: end: 20090611
  3. CYTOTEC [Suspect]
     Route: 048
     Dates: start: 20090410, end: 20090611
  4. ASPIRIN [Concomitant]
     Route: 065

REACTIONS (1)
  - INTERSTITIAL LUNG DISEASE [None]
